FAERS Safety Report 24670104 (Version 1)
Quarter: 2024Q4

REPORT INFORMATION
  Report Type: Report from Study
  Country: CA (occurrence: CA)
  Receive Date: 20241127
  Receipt Date: 20241127
  Transmission Date: 20250115
  Serious: Yes (Other)
  Sender: REGENERON
  Company Number: CA-BAYER-2024A164301

PATIENT
  Sex: Female

DRUGS (1)
  1. EYLEA [Suspect]
     Active Substance: AFLIBERCEPT
     Indication: Diabetic retinal oedema
     Dosage: EYLEA 40MG PER ML VIAL EYLEA 40MG PER ML VIAL BOTH EYE, SOLUTION FOR INJECTION, 40 MG/ML
     Dates: start: 20241112

REACTIONS (1)
  - Blindness transient [Recovered/Resolved]

NARRATIVE: CASE EVENT DATE: 20241112
